FAERS Safety Report 6417663-1 (Version None)
Quarter: 2009Q4

REPORT INFORMATION
  Report Type: 
  Country: None (occurrence: None)
  Receive Date: 20091028
  Receipt Date: 20091014
  Transmission Date: 20100525
  Serious: Yes (Other)
  Sender: FDA-Public Use
  Company Number: PHHY2009ES44637

PATIENT
  Age: 72 Year
  Sex: Male

DRUGS (1)
  1. AREDIA [Suspect]
     Dosage: 60 MG PER YEAR
     Route: 042

REACTIONS (4)
  - DISEASE PROGRESSION [None]
  - EYE PAIN [None]
  - HUMERUS FRACTURE [None]
  - IRIDOCYCLITIS [None]
